FAERS Safety Report 23241835 (Version 1)
Quarter: 2023Q4

REPORT INFORMATION
  Report Type: Spontaneous
  Country: PH (occurrence: PH)
  Receive Date: 20231129
  Receipt Date: 20231129
  Transmission Date: 20240110
  Serious: Yes (Death, Other)
  Sender: FDA-Public Use
  Company Number: PH-AMGEN-PHLSP2023209709

PATIENT
  Age: 59 Year
  Sex: Male

DRUGS (5)
  1. CINACALCET HYDROCHLORIDE [Suspect]
     Active Substance: CINACALCET HYDROCHLORIDE
     Indication: Hypercalcaemia
     Dosage: UNK
     Route: 065
  2. CINACALCET HYDROCHLORIDE [Suspect]
     Active Substance: CINACALCET HYDROCHLORIDE
     Indication: Hyperparathyroidism primary
  3. PROLIA [Suspect]
     Active Substance: DENOSUMAB
     Indication: Bone density decreased
     Dosage: 60 MILLIGRAM, Q6MO
     Route: 058
  4. PROLIA [Suspect]
     Active Substance: DENOSUMAB
     Indication: Hypercalcaemia
     Dosage: 60 MILLIGRAM, QMO
     Route: 058
  5. PROLIA [Suspect]
     Active Substance: DENOSUMAB
     Dosage: 120 MILLIGRAM, QMO
     Route: 058

REACTIONS (9)
  - Death [Fatal]
  - Chronic kidney disease [Unknown]
  - Myocardial infarction [Unknown]
  - Parathyroid tumour malignant [Unknown]
  - Nausea [Unknown]
  - Bone density decreased [Unknown]
  - Off label use [Unknown]
  - Hypercalcaemia [Unknown]
  - Hypertension [Unknown]
